FAERS Safety Report 9291082 (Version 1)
Quarter: 2012Q4

REPORT INFORMATION
  Report Type: Spontaneous
  Country: US (occurrence: None)
  Receive Date: 20121017
  Receipt Date: 20121017
  Transmission Date: 20130627
  Serious: Yes (Death)
  Sender: FDA-Public Use
  Company Number: ADR-2012-01019

PATIENT
  Sex: Female

DRUGS (2)
  1. BACLOFEN INTRATHECAL [Suspect]
     Indication: SPASTICITY
  2. BACLOFEN INTRATHECAL [Suspect]
     Indication: MULTIPLE SCLEROSIS

REACTIONS (1)
  - Pneumonia [None]
